FAERS Safety Report 19919679 (Version 3)
Quarter: 2021Q4

REPORT INFORMATION
  Report Type: Report from Study
  Country: US (occurrence: US)
  Receive Date: 20211005
  Receipt Date: 20211229
  Transmission Date: 20220303
  Serious: Yes (Disabling, Other)
  Sender: FDA-Public Use
  Company Number: US-SA-SAC20210930000858

PATIENT
  Age: 56 Year
  Sex: Male

DRUGS (3)
  1. ALGLUCOSIDASE ALFA [Suspect]
     Active Substance: ALGLUCOSIDASE ALFA
     Indication: Glycogen storage disease type II
     Dosage: 1600 MG, QOW
     Route: 042
     Dates: start: 20100921
  2. ALGLUCOSIDASE ALFA [Suspect]
     Active Substance: ALGLUCOSIDASE ALFA
     Dosage: 1600 MG, QOW
     Route: 042
     Dates: start: 20210430
  3. NEXVIAZYME [Suspect]
     Active Substance: AVALGLUCOSIDASE ALFA-NGPT
     Indication: Glycogen storage disease type II
     Dosage: 1600 MG, QOW
     Route: 042
     Dates: start: 20211108

REACTIONS (10)
  - Impaired work ability [Unknown]
  - Muscular weakness [Recovering/Resolving]
  - Condition aggravated [Recovering/Resolving]
  - Respiratory muscle weakness [Recovering/Resolving]
  - Respiratory distress [Recovering/Resolving]
  - Dyspnoea [Recovering/Resolving]
  - Loss of personal independence in daily activities [Recovering/Resolving]
  - Gait disturbance [Not Recovered/Not Resolved]
  - Mobility decreased [Recovering/Resolving]
  - Therapeutic response decreased [Unknown]

NARRATIVE: CASE EVENT DATE: 20210101
